FAERS Safety Report 13482807 (Version 3)
Quarter: 2018Q1

REPORT INFORMATION
  Report Type: Report from Study
  Country: US (occurrence: US)
  Receive Date: 20170424
  Receipt Date: 20180117
  Transmission Date: 20180508
  Serious: No
  Sender: FDA-Public Use
  Company Number: US-AMGEN-USASL2017041294

PATIENT
  Age: 60 Year
  Sex: Male
  Weight: 106.58 kg

DRUGS (1)
  1. REPATHA [Suspect]
     Active Substance: EVOLOCUMAB
     Indication: HYPERCHOLESTEROLAEMIA
     Dosage: 140 MG, Q2WK
     Route: 058
     Dates: start: 20170220, end: 20170317

REACTIONS (7)
  - Upper respiratory tract infection [Unknown]
  - Influenza like illness [Unknown]
  - Gastritis [Unknown]
  - Oropharyngeal pain [Unknown]
  - Bronchitis [Unknown]
  - Pain [Unknown]
  - Back pain [Unknown]

NARRATIVE: CASE EVENT DATE: 201703
